FAERS Safety Report 7077759-0 (Version None)
Quarter: 2010Q4

REPORT INFORMATION
  Report Type: 
  Country: None (occurrence: None)
  Receive Date: 20101101
  Receipt Date: 20100712
  Transmission Date: 20110411
  Serious: Yes (Death, Hospitalization)
  Sender: FDA-Public Use
  Company Number: PHHO2003US05194

PATIENT
  Sex: Male
  Weight: 92.3 kg

DRUGS (1)
  1. STI571/CGP57148B T35717+CAPS [Suspect]
     Indication: GASTROINTESTINAL STROMAL TUMOUR
     Dosage: 800 MG, QD
     Route: 048
     Dates: start: 20010209

REACTIONS (4)
  - DEATH [None]
  - DRUG INEFFECTIVE [None]
  - HIGH FREQUENCY ABLATION [None]
  - MALIGNANT NEOPLASM PROGRESSION [None]
